FAERS Safety Report 18940486 (Version 1)
Quarter: 2021Q1

REPORT INFORMATION
  Report Type: Spontaneous
  Country: US (occurrence: US)
  Receive Date: 20210225
  Receipt Date: 20210225
  Transmission Date: 20210420
  Serious: Yes (Other)
  Sender: FDA-Public Use
  Company Number: US-MYLANLABS-2021M1011468

PATIENT
  Age: 5 Decade
  Sex: Male

DRUGS (7)
  1. ITRACONAZOLE. [Suspect]
     Active Substance: ITRACONAZOLE
     Dosage: 200 MILLIGRAM, QD SCHEDULED FOR THREE MONTHS
     Route: 048
  2. CICLOPIROX. [Concomitant]
     Active Substance: CICLOPIROX
     Indication: BODY TINEA
     Dosage: SCHEDULED FOR THREE MONTHS
     Route: 061
  3. GRISEOFULVIN. [Concomitant]
     Active Substance: GRISEOFULVIN
     Indication: BODY TINEA
     Route: 048
  4. CICLOPIROX. [Concomitant]
     Active Substance: CICLOPIROX
     Indication: TRICHOPHYTOSIS
  5. GRISEOFULVIN. [Concomitant]
     Active Substance: GRISEOFULVIN
     Indication: TRICHOPHYTOSIS
  6. ITRACONAZOLE. [Suspect]
     Active Substance: ITRACONAZOLE
     Indication: BODY TINEA
     Dosage: 200 MILLIGRAM, BID FOR 1 WEEK EVERY MONTH FOR 4 MONTHS
     Route: 048
  7. ITRACONAZOLE. [Suspect]
     Active Substance: ITRACONAZOLE
     Indication: TRICHOPHYTOSIS
     Dosage: 200 MILLIGRAM, BID PRO RE NATA FOR FLARES
     Route: 048

REACTIONS (1)
  - Pathogen resistance [Unknown]
